FAERS Safety Report 4303403-9 (Version None)
Quarter: 2004Q1

REPORT INFORMATION
  Report Type: 
  Country: None (occurrence: None)
  Receive Date: 20040220
  Receipt Date: 20040209
  Transmission Date: 20041129
  Serious: Yes (Other)
  Sender: FDA-Public Use
  Company Number: GBWYE575511FEB04

PATIENT
  Age: 16 Year
  Sex: Male

DRUGS (1)
  1. MINOCIN [Suspect]
     Indication: ACNE
     Dosage: 100MG FREQUENCY UNSPECIFIED, ORAL
     Route: 048
     Dates: start: 20020808, end: 20030901

REACTIONS (5)
  - ANXIETY [None]
  - DEREALISATION [None]
  - DIZZINESS [None]
  - GILBERT'S SYNDROME [None]
  - WEIGHT DECREASED [None]
